FAERS Safety Report 16974344 (Version 1)
Quarter: 2019Q4

REPORT INFORMATION
  Report Type: Report from Study
  Country: JP (occurrence: JP)
  Receive Date: 20191030
  Receipt Date: 20191030
  Transmission Date: 20200122
  Serious: Yes (Other)
  Sender: FDA-Public Use
  Company Number: JP-ACTELION-A-CH2018-184259

PATIENT
  Age: 4 Year
  Sex: Female
  Weight: 13.3 kg

DRUGS (9)
  1. OPSUMIT [Suspect]
     Active Substance: MACITENTAN
     Dosage: 2 MG, QD
     Route: 048
     Dates: start: 20160715, end: 20160812
  2. UPTRAVI [Suspect]
     Active Substance: SELEXIPAG
     Dosage: 0.15 MG, BID
     Route: 048
     Dates: start: 20180302, end: 20180329
  3. UPTRAVI [Suspect]
     Active Substance: SELEXIPAG
     Indication: PULMONARY ARTERIAL HYPERTENSION
     Dosage: 0.05 MG, BID
     Route: 048
     Dates: start: 20171215, end: 20180104
  4. MAGLAX [Concomitant]
     Active Substance: MAGNESIUM OXIDE
     Indication: CONSTIPATION
     Dosage: 0.5 G, QD
     Dates: end: 20180510
  5. OPSUMIT [Suspect]
     Active Substance: MACITENTAN
     Dosage: 2.5 MG, QD
     Route: 048
     Dates: start: 20160812
  6. UPTRAVI [Suspect]
     Active Substance: SELEXIPAG
     Dosage: 0.2 MG, BID
     Route: 048
     Dates: start: 20180330
  7. ADCIRCA [Concomitant]
     Active Substance: TADALAFIL
     Indication: PULMONARY ARTERIAL HYPERTENSION
     Dosage: 24 MG, QD
  8. UPTRAVI [Suspect]
     Active Substance: SELEXIPAG
     Dosage: 0.075 MG, BID
     Route: 048
     Dates: start: 20180105, end: 20180301
  9. OPSUMIT [Suspect]
     Active Substance: MACITENTAN
     Indication: PULMONARY ARTERIAL HYPERTENSION
     Dosage: 1 MG, QD
     Route: 048
     Dates: start: 20160617, end: 20160715

REACTIONS (2)
  - Platelet count decreased [Recovered/Resolved]
  - Anaemia [Recovered/Resolved]

NARRATIVE: CASE EVENT DATE: 20161007
